FAERS Safety Report 25123944 (Version 1)
Quarter: 2025Q1

REPORT INFORMATION
  Report Type: Spontaneous
  Country: US (occurrence: US)
  Receive Date: 20250326
  Receipt Date: 20250326
  Transmission Date: 20250408
  Serious: Yes (Other)
  Sender: Unknown Manufacturer
  Company Number: US-MELINTA THERAPEUTICS, LLC-US-MLNT-24-00159

PATIENT
  Sex: Female

DRUGS (1)
  1. METOPROLOL SUCCINATE [Suspect]
     Active Substance: METOPROLOL SUCCINATE
     Indication: Product used for unknown indication
     Route: 048

REACTIONS (6)
  - Cardiac arrest [Unknown]
  - Bundle branch block left [Unknown]
  - Disturbance in attention [Unknown]
  - Visual impairment [Unknown]
  - Blood pressure decreased [Unknown]
  - Dizziness [Unknown]
